FAERS Safety Report 15917420 (Version 1)
Quarter: 2019Q1

REPORT INFORMATION
  Report Type: Spontaneous
  Country: US (occurrence: US)
  Receive Date: 20190115
  Receipt Date: 20190115
  Transmission Date: 20190417
  Serious: No
  Sender: FDA-Public Use
  Company Number: None

PATIENT
  Age: 5 Year
  Sex: Female

DRUGS (2)
  1. MEKINIST [Suspect]
     Active Substance: TRAMETINIB DIMETHYL SULFOXIDE
     Indication: NEUROBLASTOMA
     Dosage: ?          OTHER DOSE:0.66MG;?
     Route: 048
     Dates: start: 20181215
  2. CYPROHEPTADINE. [Concomitant]
     Active Substance: CYPROHEPTADINE

REACTIONS (3)
  - Product use in unapproved indication [None]
  - Product administered to patient of inappropriate age [None]
  - Off label use [None]

NARRATIVE: CASE EVENT DATE: 20190115
